FAERS Safety Report 23994811 (Version 1)
Quarter: 2024Q2

REPORT INFORMATION
  Report Type: Spontaneous
  Country: US (occurrence: US)
  Receive Date: 20240620
  Receipt Date: 20240620
  Transmission Date: 20240716
  Serious: Yes (Other)
  Sender: FDA-Public Use
  Company Number: US-PFIZER INC-202400195017

PATIENT
  Age: 82 Year
  Sex: Female

DRUGS (1)
  1. IBRANCE [Suspect]
     Active Substance: PALBOCICLIB
     Dosage: DAILY FOR 21 DAYS ON, THEN 7 DAYS OFF
     Dates: start: 201704

REACTIONS (8)
  - Haematochezia [Unknown]
  - Fall [Unknown]
  - Rib fracture [Unknown]
  - Headache [Unknown]
  - Constipation [Not Recovered/Not Resolved]
  - Glossodynia [Unknown]
  - Limb injury [Unknown]
  - Allergy to animal [Unknown]

NARRATIVE: CASE EVENT DATE: 20240613
